FAERS Safety Report 11752703 (Version 1)
Quarter: 2015Q4

REPORT INFORMATION
  Report Type: Spontaneous
  Country: CA (occurrence: CA)
  Receive Date: 20151119
  Receipt Date: 20151119
  Transmission Date: 20160304
  Serious: Yes (Other)
  Sender: FDA-Public Use
  Company Number: CA-PAR PHARMACEUTICAL COMPANIES-2015SCPR014486

PATIENT

DRUGS (1)
  1. DILTIAZEM HCL [Suspect]
     Active Substance: DILTIAZEM HYDROCHLORIDE
     Indication: PRODUCT USED FOR UNKNOWN INDICATION
     Dosage: 19.4 G, UNKNOWN
     Route: 048

REACTIONS (10)
  - Cardiac arrest [Recovering/Resolving]
  - Shock [Recovering/Resolving]
  - Generalised tonic-clonic seizure [Unknown]
  - Circulatory collapse [Recovering/Resolving]
  - Bradycardia [Recovering/Resolving]
  - Ischaemic hepatitis [None]
  - Lactic acidosis [Unknown]
  - Anuria [Unknown]
  - Intentional overdose [Unknown]
  - Tetany [Unknown]
